FAERS Safety Report 19833308 (Version 2)
Quarter: 2021Q3

REPORT INFORMATION
  Report Type: Spontaneous
  Country: CA (occurrence: CA)
  Receive Date: 20210914
  Receipt Date: 20210927
  Transmission Date: 20211014
  Serious: Yes (Other)
  Sender: FDA-Public Use
  Company Number: CA-PFIZER INC-202101151777

PATIENT
  Age: 57 Year
  Sex: Female
  Weight: 99.77 kg

DRUGS (2)
  1. LETROZOLE. [Suspect]
     Active Substance: LETROZOLE
  2. IBRANCE [Suspect]
     Active Substance: PALBOCICLIB
     Dosage: UNK

REACTIONS (5)
  - Fungal infection [Unknown]
  - Decreased appetite [Unknown]
  - Blood glucose increased [Not Recovered/Not Resolved]
  - Kidney infection [Unknown]
  - Hip fracture [Unknown]
